FAERS Safety Report 20449180 (Version 2)
Quarter: 2022Q1

REPORT INFORMATION
  Report Type: Spontaneous
  Country: US (occurrence: US)
  Receive Date: 20220209
  Receipt Date: 20220329
  Transmission Date: 20220423
  Serious: No
  Sender: FDA-Public Use
  Company Number: US-ALK-ABELLO A/S-2022AA000092

PATIENT

DRUGS (8)
  1. ODACTRA [Suspect]
     Active Substance: DERMATOPHAGOIDES FARINAE\DERMATOPHAGOIDES PTERONYSSINUS
     Indication: Product used for unknown indication
     Dosage: UNK
     Route: 060
     Dates: start: 202201
  2. ALLEGRA                            /01314201/ [Concomitant]
     Indication: Product used for unknown indication
     Dosage: 180 MILLIGRAM
     Route: 065
  3. FAMOTIDINE [Concomitant]
     Active Substance: FAMOTIDINE
     Indication: Product used for unknown indication
     Dosage: 20 MILLIGRAM
     Route: 065
  4. PREDNISONE [Concomitant]
     Active Substance: PREDNISONE
     Indication: Product used for unknown indication
     Dosage: 5 MILLIGRAM
     Route: 065
  5. VITAMIN E                          /00110501/ [Concomitant]
     Indication: Product used for unknown indication
     Route: 065
  6. VITAMIN D                          /00107901/ [Concomitant]
     Indication: Product used for unknown indication
     Route: 065
  7. ATORVASTATIN [Concomitant]
     Active Substance: ATORVASTATIN
     Indication: Product used for unknown indication
     Dosage: 10 MILLIGRAM
     Route: 065
  8. CLOTRIMAZOLE W/BETAMETHASONE DIPROPIONAT [Concomitant]
     Route: 061

REACTIONS (19)
  - Swelling face [Unknown]
  - Erythema [Unknown]
  - Pruritus [Not Recovered/Not Resolved]
  - Pain [Not Recovered/Not Resolved]
  - Dyspnoea [Unknown]
  - Chest discomfort [Unknown]
  - Insomnia [Unknown]
  - Tinnitus [Not Recovered/Not Resolved]
  - Headache [Unknown]
  - Heart rate increased [Recovered/Resolved]
  - Rosacea [Unknown]
  - Tremor [Unknown]
  - Fatigue [Unknown]
  - Asthenia [Unknown]
  - Skin burning sensation [Unknown]
  - Feeling hot [Unknown]
  - Feeling cold [Unknown]
  - Hypersensitivity [Unknown]
  - Rash [Unknown]

NARRATIVE: CASE EVENT DATE: 20220101
